FAERS Safety Report 9244596 (Version 1)
Quarter: 2013Q2

REPORT INFORMATION
  Report Type: Spontaneous
  Country: US (occurrence: US)
  Receive Date: 20130422
  Receipt Date: 20130422
  Transmission Date: 20140414
  Serious: Yes (Other)
  Sender: FDA-Public Use
  Company Number: PHEH2013US008591

PATIENT
  Sex: Male

DRUGS (2)
  1. TEKTURNA [Suspect]
     Indication: HYPERTENSION
     Dosage: UNK
     Dates: start: 2007
  2. BENICAR [Suspect]

REACTIONS (5)
  - Cerebrovascular accident [Unknown]
  - Renal failure chronic [Unknown]
  - Pain [Unknown]
  - Anxiety [Unknown]
  - Anhedonia [Unknown]
